FAERS Safety Report 10947351 (Version 1)
Quarter: 2015Q1

REPORT INFORMATION
  Report Type: Spontaneous
  Country: US (occurrence: US)
  Receive Date: 20150323
  Receipt Date: 20150323
  Transmission Date: 20150721
  Serious: No
  Sender: FDA-Public Use
  Company Number: US-BAUSCH-SYM-2014-14981

PATIENT
  Sex: Male

DRUGS (2)
  1. XENAZINE [Suspect]
     Active Substance: TETRABENAZINE
     Indication: HUNTINGTON^S DISEASE
     Dosage: 1 TABLET, ONCE DAILY
     Route: 048
     Dates: start: 20130905, end: 20130914
  2. XENAZINE [Suspect]
     Active Substance: TETRABENAZINE
     Dosage: 1/2 TABLET, TWICE A DAY
     Route: 048
     Dates: start: 20131112

REACTIONS (3)
  - Agitation [Unknown]
  - Aggression [Unknown]
  - Restlessness [Unknown]
